FAERS Safety Report 5503163-X (Version None)
Quarter: 2007Q4

REPORT INFORMATION
  Report Type: 
  Country: None (occurrence: None)
  Receive Date: 20071029
  Receipt Date: 20071029
  Transmission Date: 20080405
  Serious: Yes (Hospitalization)
  Sender: FDA-Public Use
  Company Number: None

PATIENT
  Age: 48 Year
  Sex: Male

DRUGS (2)
  1. SULFAMETHOXAZOLE AND TRIMETHOPRIM [Suspect]
     Indication: STAPHYLOCOCCAL INFECTION
     Dosage: 800/160MG BID PO
     Route: 048
     Dates: start: 20070911, end: 20070924
  2. SULFAMETHOXAZOLE AND TRIMETHOPRIM [Suspect]
     Indication: TENOSYNOVITIS
     Dosage: 800/160MG BID PO
     Route: 048
     Dates: start: 20070911, end: 20070924

REACTIONS (6)
  - ATAXIA [None]
  - HALLUCINATION [None]
  - HYPERKALAEMIA [None]
  - RENAL FAILURE ACUTE [None]
  - THROMBOCYTOPENIA [None]
  - TREMOR [None]
